FAERS Safety Report 5176920-X (Version None)
Quarter: 2006Q4

REPORT INFORMATION
  Report Type: 
  Country: None (occurrence: None)
  Receive Date: 20061218
  Receipt Date: 20061213
  Transmission Date: 20070319
  Serious: Yes (Life-Threatening, Hospitalization)
  Sender: FDA-Public Use
  Company Number: PHBS2006ES19229

PATIENT
  Age: 73 Year
  Sex: Female

DRUGS (7)
  1. LESCOL [Suspect]
     Indication: HYPERCHOLESTEROLAEMIA
     Dosage: 80 MG, QD
     Route: 048
     Dates: start: 20060421, end: 20060511
  2. DAONIL [Concomitant]
     Dosage: 5 MG/DAY
     Route: 048
     Dates: start: 20031117
  3. DIANBEN [Concomitant]
     Dosage: 850 MG/DAY
     Route: 048
     Dates: start: 20040102
  4. COAPROVEL [Concomitant]
     Dosage: 1 DF, QD
     Route: 048
     Dates: start: 20060421
  5. ALDACTONE [Concomitant]
     Route: 048
     Dates: start: 20060421
  6. ACETYLSALICYLIC ACID SRT [Concomitant]
     Dosage: 100 MG/DAY
     Route: 048
     Dates: start: 20060421
  7. EMCONCOR [Concomitant]
     Dosage: 10 MG/DAY
     Route: 048
     Dates: start: 20060421

REACTIONS (10)
  - ALANINE AMINOTRANSFERASE INCREASED [None]
  - ASPARTATE AMINOTRANSFERASE INCREASED [None]
  - BILIRUBIN CONJUGATED INCREASED [None]
  - BLOOD ALKALINE PHOSPHATASE INCREASED [None]
  - BLOOD BILIRUBIN INCREASED [None]
  - BLOOD CREATININE INCREASED [None]
  - BLOOD UREA INCREASED [None]
  - GAMMA-GLUTAMYLTRANSFERASE INCREASED [None]
  - HEPATITIS [None]
  - RENAL IMPAIRMENT [None]
